FAERS Safety Report 22856320 (Version 8)
Quarter: 2023Q4

REPORT INFORMATION
  Report Type: Report from Study
  Country: CO (occurrence: CO)
  Receive Date: 20230823
  Receipt Date: 20231003
  Transmission Date: 20240110
  Serious: Yes (Disabling, Other)
  Sender: FDA-Public Use
  Company Number: CO-TAKEDA-2023TUS080229

PATIENT
  Age: 72 Year
  Sex: Female
  Weight: 80 kg

DRUGS (7)
  1. IXAZOMIB [Suspect]
     Active Substance: IXAZOMIB
     Indication: Plasma cell myeloma
     Dosage: 4 MILLIGRAM
     Route: 048
     Dates: start: 20230612, end: 20230921
  2. DEXAMETHASONE [Suspect]
     Active Substance: DEXAMETHASONE
     Indication: Product used for unknown indication
     Dosage: UNK
     Route: 048
  3. LENALIDOMIDE [Suspect]
     Active Substance: LENALIDOMIDE
     Indication: Plasma cell myeloma
     Dosage: UNK
     Route: 048
  4. DARATUMUMAB [Suspect]
     Active Substance: DARATUMUMAB
     Indication: Product used for unknown indication
     Dosage: UNK
     Route: 065
  5. SERTRALINE [Concomitant]
     Active Substance: SERTRALINE HYDROCHLORIDE
     Indication: Depression
     Dosage: UNK
     Route: 048
  6. SERTRALINE [Concomitant]
     Active Substance: SERTRALINE HYDROCHLORIDE
     Indication: Anxiety
  7. CALCIUM [Concomitant]
     Active Substance: CALCIUM
     Dosage: UNK
     Route: 048

REACTIONS (29)
  - Deafness [Unknown]
  - Back pain [Unknown]
  - Fatigue [Unknown]
  - Discouragement [Unknown]
  - Feeling abnormal [Unknown]
  - Blood calcium decreased [Unknown]
  - Urinary tract infection [Not Recovered/Not Resolved]
  - Apathy [Unknown]
  - Treatment noncompliance [Unknown]
  - Hypovitaminosis [Unknown]
  - Abdominal distension [Recovered/Resolved]
  - Poor quality sleep [Recovered/Resolved]
  - Abdominal pain upper [Recovered/Resolved]
  - Malaise [Not Recovered/Not Resolved]
  - Dyspepsia [Recovered/Resolved]
  - Gastrointestinal injury [Recovered/Resolved]
  - Injection site bruising [Unknown]
  - Injection site pain [Unknown]
  - Dizziness [Not Recovered/Not Resolved]
  - Vomiting [Recovered/Resolved]
  - Nausea [Not Recovered/Not Resolved]
  - Muscle spasms [Unknown]
  - Diarrhoea [Unknown]
  - Dermatitis [Unknown]
  - Joint swelling [Unknown]
  - Balance disorder [Unknown]
  - Urticaria [Unknown]
  - Pruritus [Unknown]
  - Off label use [Unknown]

NARRATIVE: CASE EVENT DATE: 20230612
